FAERS Safety Report 12593844 (Version 1)
Quarter: 2016Q3

REPORT INFORMATION
  Report Type: Spontaneous
  Country: US (occurrence: US)
  Receive Date: 20160726
  Receipt Date: 20160726
  Transmission Date: 20161109
  Serious: No
  Sender: FDA-Public Use
  Company Number: US-ABBVIE-16P-163-1682169-00

PATIENT

DRUGS (2)
  1. SYNTHROID [Suspect]
     Active Substance: LEVOTHYROXINE SODIUM
     Indication: PRODUCT USED FOR UNKNOWN INDICATION
     Route: 065
  2. ARMOUR THYROID [Suspect]
     Active Substance: THYROID, PORCINE
     Indication: PARATHYROID DISORDER
     Route: 065

REACTIONS (6)
  - Dry skin [Unknown]
  - Headache [Unknown]
  - Weight decreased [Unknown]
  - Weight increased [Unknown]
  - Asthenia [Unknown]
  - Depressed mood [Unknown]
